FAERS Safety Report 5637497-5 (Version None)
Quarter: 2008Q1

REPORT INFORMATION
  Report Type: 
  Country: None (occurrence: None)
  Receive Date: 20080225
  Receipt Date: 20080213
  Transmission Date: 20080703
  Serious: Yes (Other)
  Sender: FDA-Public Use
  Company Number: FR-PFIZER INC-2008014730

PATIENT
  Sex: Male

DRUGS (1)
  1. LYRICA [Suspect]
     Indication: NEURALGIA
     Dosage: DAILY DOSE:225MG-FREQ:TWICE DAILY

REACTIONS (7)
  - ARTHRALGIA [None]
  - DYSSTASIA [None]
  - EYE PAIN [None]
  - HEADACHE [None]
  - IMMOBILE [None]
  - INSOMNIA [None]
  - ORAL DISCOMFORT [None]
